FAERS Safety Report 5257715-5 (Version None)
Quarter: 2007Q1

REPORT INFORMATION
  Report Type: 
  Country: None (occurrence: None)
  Receive Date: 20070307
  Receipt Date: 20070228
  Transmission Date: 20070707
  Serious: No
  Sender: FDA-Public Use
  Company Number: 2006UW08243

PATIENT
  Age: 37 Year
  Sex: Female
  Weight: 153.2 kg

DRUGS (7)
  1. SEROQUEL [Suspect]
     Indication: DEPRESSION
     Route: 048
     Dates: end: 20060415
  2. SEROQUEL [Suspect]
     Indication: SUICIDAL IDEATION
     Route: 048
     Dates: end: 20060415
  3. SEROQUEL [Suspect]
     Route: 048
     Dates: start: 20060415
  4. SEROQUEL [Suspect]
     Route: 048
     Dates: start: 20060415
  5. GEODON [Concomitant]
  6. ZYPREXA [Concomitant]
  7. LAMICTAL [Concomitant]

REACTIONS (1)
  - DIABETES MELLITUS [None]
